FAERS Safety Report 8447402-4 (Version None)
Quarter: 2012Q2

REPORT INFORMATION
  Report Type: 
  Country: None (occurrence: None)
  Receive Date: 20120619
  Receipt Date: 20120608
  Transmission Date: 20120825
  Serious: Yes (Hospitalization)
  Sender: FDA-Public Use
  Company Number: FR-SANOFI-AVENTIS-2012SA040903

PATIENT
  Age: 71 Year
  Sex: Female

DRUGS (8)
  1. LITHIUM CARBONATE [Suspect]
     Indication: BIPOLAR DISORDER
     Route: 048
     Dates: start: 20100101, end: 20120509
  2. FLUOXETINE [Suspect]
     Indication: BIPOLAR DISORDER
     Route: 048
     Dates: start: 20120401, end: 20120509
  3. BISOPROLOL FUMARATE [Concomitant]
  4. EUPRESSYL [Concomitant]
  5. TRANXENE [Suspect]
     Indication: BIPOLAR DISORDER
     Route: 048
     Dates: start: 20100101, end: 20120509
  6. LASIX [Suspect]
     Route: 048
     Dates: start: 20120401, end: 20120509
  7. NICARDIPINE HYDROCHLORIDE [Suspect]
     Route: 048
     Dates: start: 20100101, end: 20120509
  8. ACETAMINOPHEN [Concomitant]

REACTIONS (3)
  - HYPERPARATHYROIDISM [None]
  - HYPERCALCAEMIA [None]
  - GOITRE [None]
